FAERS Safety Report 19989276 (Version 2)
Quarter: 2022Q2

REPORT INFORMATION
  Report Type: Spontaneous
  Country: US (occurrence: US)
  Receive Date: 20211025
  Receipt Date: 20220420
  Transmission Date: 20220720
  Serious: No
  Sender: FDA-Public Use
  Company Number: US-SA-SAC20211019000159

PATIENT
  Sex: Female

DRUGS (3)
  1. AUBAGIO [Suspect]
     Active Substance: TERIFLUNOMIDE
     Indication: Multiple sclerosis
     Dosage: 14 MG, QD
     Route: 048
     Dates: start: 2020
  2. IRON [Concomitant]
     Active Substance: IRON
  3. VITAMINS [Concomitant]
     Active Substance: VITAMINS

REACTIONS (7)
  - Memory impairment [Unknown]
  - Confusional state [Unknown]
  - Dizziness [Unknown]
  - Frustration tolerance decreased [Unknown]
  - Depressed mood [Unknown]
  - Fatigue [Unknown]
  - Unevaluable event [Unknown]
